FAERS Safety Report 4550585-X (Version None)
Quarter: 2004Q4

REPORT INFORMATION
  Report Type: 
  Country: None (occurrence: None)
  Receive Date: 20041227
  Receipt Date: 20041122
  Transmission Date: 20050328
  Serious: No
  Sender: FDA-Public Use
  Company Number: 04P-163-0281144-00

PATIENT
  Age: 67 Year
  Sex: Female
  Weight: 45.3597 kg

DRUGS (11)
  1. HUMIRA [Suspect]
     Indication: RHEUMATOID ARTHRITIS
     Dosage: 40 MG, 1 IN 2 WK, SUBCUTANEOUS
     Route: 058
     Dates: start: 20040816
  2. ATORVASTATIN [Concomitant]
  3. FOLIC ACID [Concomitant]
  4. LEFLUNOMIDE [Concomitant]
  5. CALCIUM WITH VITAMIN D [Concomitant]
  6. MULTIVITAMIN [Concomitant]
  7. ERGOCALCIFEROL [Concomitant]
  8. ASCORBIC ACID [Concomitant]
  9. TOCOPHEROL CONCENTRATE CAP [Concomitant]
  10. ALENDRONATE SODIUM [Concomitant]
  11. CERUVENT [Concomitant]

REACTIONS (3)
  - COUGH [None]
  - NASOPHARYNGITIS [None]
  - TOOTHACHE [None]
